FAERS Safety Report 7530100-9 (Version None)
Quarter: 2011Q2

REPORT INFORMATION
  Report Type: 
  Country: None (occurrence: None)
  Receive Date: 20110607
  Receipt Date: 20110530
  Transmission Date: 20111010
  Serious: Yes (Death, Hospitalization)
  Sender: FDA-Public Use
  Company Number: PHHO2011TR09409

PATIENT
  Sex: Male
  Weight: 75 kg

DRUGS (3)
  1. EVEROLIMUS [Suspect]
     Indication: METASTATIC RENAL CELL CARCINOMA
     Dosage: 10 MG, BID
     Route: 048
     Dates: start: 20110407, end: 20110529
  2. DEXAMETHASONE [Concomitant]
     Indication: DYSPNOEA
     Dosage: UNK
     Route: 048
     Dates: start: 20110516
  3. SALBUTAMOL SULFATE [Concomitant]
     Indication: DYSPNOEA

REACTIONS (1)
  - HAEMOPTYSIS [None]
